FAERS Safety Report 5570574-6 (Version None)
Quarter: 2007Q4

REPORT INFORMATION
  Report Type: 
  Country: None (occurrence: None)
  Receive Date: 20071219
  Receipt Date: 20071211
  Transmission Date: 20080405
  Serious: Yes (Other)
  Sender: FDA-Public Use
  Company Number: 163-21880-07120700

PATIENT
  Age: 64 Year
  Sex: Female

DRUGS (7)
  1. REVLIMID [Suspect]
     Indication: MULTIPLE MYELOMA
     Dosage: 25 MG, OD, ORAL
     Route: 048
     Dates: start: 20071115, end: 20071124
  2. DEXAMETHASONE TAB [Concomitant]
  3. ATENOLOL [Concomitant]
  4. ALLOPURINOL [Concomitant]
  5. LEVOTHYROXINE SODIUM [Concomitant]
  6. POTASSIUM (POTASSIUM) [Concomitant]
  7. LASIX [Concomitant]

REACTIONS (1)
  - TUMOUR LYSIS SYNDROME [None]
